FAERS Safety Report 6567315-2 (Version None)
Quarter: 2010Q1

REPORT INFORMATION
  Report Type: 
  Country: None (occurrence: None)
  Receive Date: 20100202
  Receipt Date: 20100120
  Transmission Date: 20100710
  Serious: Yes (Other)
  Sender: FDA-Public Use
  Company Number: PHHY2010GB04598

PATIENT
  Sex: Female

DRUGS (1)
  1. TEGRETOL RETARD [Suspect]
     Dosage: 400MG/DAY
     Route: 048

REACTIONS (1)
  - CONVULSION [None]
